FAERS Safety Report 10230106 (Version 2)
Quarter: 2015Q1

REPORT INFORMATION
  Report Type: Spontaneous
  Country: GB (occurrence: GB)
  Receive Date: 20140611
  Receipt Date: 20140611
  Transmission Date: 20150720
  Serious: Yes (Other)
  Sender: FDA-Public Use
  Company Number: GB-MYLANLABS-2014S1012471

PATIENT
  Age: 42 Year
  Sex: Male

DRUGS (29)
  1. CARBAMAZEPINE. [Suspect]
     Active Substance: CARBAMAZEPINE
     Indication: SEIZURE
     Dosage: 200 MG, BID
     Dates: start: 1988
  2. TEGRETOL [Suspect]
     Active Substance: CARBAMAZEPINE
     Indication: EPILEPSY
     Dosage: 300 MG, BID (300MG IN THE MORNING AND 300 MG AT NIGHT)
     Dates: start: 20140206
  3. TEGRETOL [Suspect]
     Active Substance: CARBAMAZEPINE
     Indication: EPILEPSY
     Dosage: 500 MG, UNK
  4. LAMOTRIGINE. [Suspect]
     Active Substance: LAMOTRIGINE
     Dosage: 200 MG, UNK
  5. LAMOTRIGINE. [Suspect]
     Active Substance: LAMOTRIGINE
     Dosage: 150 MG, BID
  6. LAMICTAL [Suspect]
     Active Substance: LAMOTRIGINE
     Indication: EPILEPSY
     Dosage: REDUCED DOSE BY 25 MG, UNK
  7. MIDAZOLAM [Suspect]
     Active Substance: MIDAZOLAM\MIDAZOLAM HYDROCHLORIDE
     Dosage: UNK UKN, UNK
     Route: 002
  8. TEGRETOL [Suspect]
     Active Substance: CARBAMAZEPINE
     Indication: EPILEPSY
     Dosage: 300 MG, BID (300MG IN THE MORNING AND 300 MG AT NIGHT)
     Dates: start: 1989, end: 20140101
  9. CARBAMAZEPINE. [Suspect]
     Active Substance: CARBAMAZEPINE
     Indication: SEIZURE
     Dosage: 300 MG, BID
  10. LAMOTRIGINE. [Suspect]
     Active Substance: LAMOTRIGINE
     Dosage: 300 MG/24 HOURS
  11. LAMICTAL [Suspect]
     Active Substance: LAMOTRIGINE
     Indication: EPILEPSY
     Dosage: 400 MG, UNK
     Dates: start: 200309
  12. LAMICTAL [Suspect]
     Active Substance: LAMOTRIGINE
     Indication: EPILEPSY
     Dosage: REDUCED BY ANOTHER 250 MG (250MG), UNK
  13. TEGRETOL [Suspect]
     Active Substance: CARBAMAZEPINE
     Indication: EPILEPSY
     Dosage: 400 MG, UNK
  14. TEGRETOL [Suspect]
     Active Substance: CARBAMAZEPINE
     Indication: EPILEPSY
     Dosage: 1000 MG, UNK
     Dates: start: 200309, end: 20120511
  15. VALPROIC ACID. [Suspect]
     Active Substance: VALPROIC ACID
     Dosage: UNK UKN, UNK
  16. CARBAMAZEPINE. [Suspect]
     Active Substance: CARBAMAZEPINE
     Indication: SEIZURE
     Dosage: 200 MG, BID
  17. LAMOTRIGINE. [Suspect]
     Active Substance: LAMOTRIGINE
     Dosage: 500 MG/24 HOURS
  18. LAMOTRIGINE. [Suspect]
     Active Substance: LAMOTRIGINE
     Dosage: UNK UKN, UNK
  19. LAMICTAL [Suspect]
     Active Substance: LAMOTRIGINE
     Indication: EPILEPSY
     Dosage: UNK UKN, UNK
  20. ADCAL D3 [Concomitant]
     Active Substance: CALCIUM CARBONATE\CHOLECALCIFEROL
     Dosage: UNK UKN, UNK
  21. LAMICTAL [Suspect]
     Active Substance: LAMOTRIGINE
     Indication: EPILEPSY
     Dosage: 225 MG (TAKEN DOWN ANOTHER 25 MG FROM 250 MG), UNK
  22. CARBAMAZEPINE. [Suspect]
     Active Substance: CARBAMAZEPINE
     Indication: SEIZURE
     Dosage: 300 MG, UNK
  23. CARBAMAZEPINE. [Suspect]
     Active Substance: CARBAMAZEPINE
     Indication: SEIZURE
     Dosage: 100 MG, BID
  24. TEGRETOL [Suspect]
     Active Substance: CARBAMAZEPINE
     Indication: EPILEPSY
     Dosage: 600 MG, UNK
  25. VITAMIN D [Concomitant]
     Active Substance: CHOLECALCIFEROL
     Indication: BONE DISORDER
     Dosage: UNK UKN, UNK
  26. TOPIRAMATE. [Suspect]
     Active Substance: TOPIRAMATE
     Dosage: 25 MG, QOD
  27. LAMICTAL [Suspect]
     Active Substance: LAMOTRIGINE
     Indication: EPILEPSY
     Dosage: 300 MG/DAY
  28. TEGRETOL [Suspect]
     Active Substance: CARBAMAZEPINE
     Indication: EPILEPSY
     Dosage: 200 MG, UNK
  29. VALPROIC ACID. [Suspect]
     Active Substance: VALPROIC ACID
     Dosage: 400 MG/24 HOURS

REACTIONS (44)
  - Gait disturbance [Unknown]
  - Irritability [Unknown]
  - Upper respiratory tract infection [Unknown]
  - Diarrhoea [Unknown]
  - Distractibility [Unknown]
  - Emotional disorder [Unknown]
  - Emotional distress [Unknown]
  - Malaise [Unknown]
  - Depressed mood [Unknown]
  - Stress [Unknown]
  - Suspiciousness [Unknown]
  - Generalised tonic-clonic seizure [Unknown]
  - Anxiety [Unknown]
  - Dyskinesia [Not Recovered/Not Resolved]
  - Epilepsy [Unknown]
  - Tonic clonic movements [Not Recovered/Not Resolved]
  - Petit mal epilepsy [Unknown]
  - Hallucination [Unknown]
  - Seizure [Unknown]
  - Fear [Unknown]
  - Psychotic disorder [Unknown]
  - Abnormal behaviour [Unknown]
  - Toxicity to various agents [Recovered/Resolved]
  - Musculoskeletal stiffness [Unknown]
  - Bone density decreased [Unknown]
  - Hyperexplexia [Unknown]
  - Ataxia [Not Recovered/Not Resolved]
  - Agitation [Unknown]
  - Balance disorder [Unknown]
  - Complex partial seizures [Unknown]
  - Insomnia [Unknown]
  - Cerebral ventricle dilatation [Unknown]
  - Gastrointestinal disorder [Unknown]
  - Decreased appetite [Unknown]
  - Staring [Unknown]
  - Euphoric mood [Unknown]
  - Frustration [Unknown]
  - Microcephaly [Unknown]
  - Tremor [Unknown]
  - Aggression [Unknown]
  - Drug level increased [Unknown]
  - Catatonia [Unknown]
  - Depressed level of consciousness [Unknown]
  - Fatigue [Unknown]

NARRATIVE: CASE EVENT DATE: 199304
